FAERS Safety Report 9400153 (Version 1)
Quarter: 2013Q2

REPORT INFORMATION
  Report Type: Spontaneous
  Country: US (occurrence: None)
  Receive Date: 20130516
  Receipt Date: 20130516
  Transmission Date: 20140414
  Serious: Yes (Death)
  Sender: FDA-Public Use
  Company Number: CC400149549

PATIENT
  Age: 69 Year
  Sex: Male
  Weight: 95 kg

DRUGS (15)
  1. CEFTRIAXONE [Suspect]
     Indication: URINARY TRACT INFECTION
     Route: 042
     Dates: start: 20120805, end: 20120806
  2. AMIODARONE 200MG [Concomitant]
  3. ASPIRIN 81MG [Concomitant]
  4. DOCUSATE SODIUM 100MG [Concomitant]
  5. FLUTICASONE NASAL SPRAY [Concomitant]
  6. FUROSEMIDE IV [Concomitant]
  7. INSULIN SLIDING SCALE [Concomitant]
  8. LEVOTHYROXINE 25MCG [Concomitant]
  9. POLYETHYLENE GLYCOL 3350 17GM [Concomitant]
  10. PANTOPRAZOLE 40MG [Concomitant]
  11. ROSUVASTION 10MG [Concomitant]
  12. MORPHINE PRN [Concomitant]
  13. ACETAMINOPHEN (+) OXYCODONE PRN [Concomitant]
  14. ONDANSETRON 4MG [Concomitant]
  15. CALCIUM GLUCONATE 2GMIV [Concomitant]

REACTIONS (1)
  - Cardiac arrest [None]
